FAERS Safety Report 12389248 (Version 1)
Quarter: 2016Q2

REPORT INFORMATION
  Report Type: Spontaneous
  Country: US (occurrence: US)
  Receive Date: 20160520
  Receipt Date: 20160520
  Transmission Date: 20160815
  Serious: Yes (Other)
  Sender: FDA-Public Use
  Company Number: ADR-2015-01337

PATIENT
  Age: 70 Year
  Sex: Female

DRUGS (4)
  1. LIORESAL [Suspect]
     Active Substance: BACLOFEN
     Route: 037
  2. UNKNOWN [Suspect]
     Active Substance: UNSPECIFIED INGREDIENT
     Route: 048
  3. BACLOFEN. [Suspect]
     Active Substance: BACLOFEN
     Route: 048
  4. MORPHINE [Suspect]
     Active Substance: MORPHINE
     Route: 037

REACTIONS (6)
  - Wound infection staphylococcal [Recovered/Resolved]
  - Drug withdrawal syndrome [Recovered/Resolved]
  - Implant site infection [Recovered/Resolved]
  - Pain [Recovered/Resolved]
  - Post procedural infection [Recovered/Resolved]
  - Hallucination [Recovered/Resolved]

NARRATIVE: CASE EVENT DATE: 201207
